FAERS Safety Report 4893313-0 (Version None)
Quarter: 2006Q1

REPORT INFORMATION
  Report Type: 
  Country: None (occurrence: None)
  Receive Date: 20060124
  Receipt Date: 20060112
  Transmission Date: 20060701
  Serious: Yes (Death, Hospitalization)
  Sender: FDA-Public Use
  Company Number: 2006009580

PATIENT
  Age: 53 Year
  Sex: Male

DRUGS (2)
  1. IRINOTECAN HCL [Suspect]
     Indication: SQUAMOUS CELL CARCINOMA
     Dosage: 88 MG
     Dates: start: 20051220, end: 20051220
  2. CISPLATIN [Suspect]
     Indication: SQUAMOUS CELL CARCINOMA
     Dosage: 53 MG
     Dates: start: 20051220, end: 20051220

REACTIONS (6)
  - CATHETER RELATED COMPLICATION [None]
  - DEHYDRATION [None]
  - DIARRHOEA [None]
  - DRUG TOXICITY [None]
  - NEOPLASM RECURRENCE [None]
  - WOUND DEHISCENCE [None]
